FAERS Safety Report 9439311 (Version 2)
Quarter: 2013Q3

REPORT INFORMATION
  Report Type: Report from Study
  Country: DE (occurrence: DE)
  Receive Date: 20130804
  Receipt Date: 20130819
  Transmission Date: 20140515
  Serious: Yes (Other)
  Sender: FDA-Public Use
  Company Number: PHHY2013DE080205

PATIENT
  Sex: Male

DRUGS (2)
  1. FTY 720 [Suspect]
     Indication: MULTIPLE SCLEROSIS
     Dosage: 0.5 MG, QD
     Route: 048
     Dates: start: 20120119
  2. CYMBALTA [Concomitant]
     Dosage: 60 MG, QD
     Dates: start: 20090517

REACTIONS (3)
  - Hemiparesis [Not Recovered/Not Resolved]
  - Extensor plantar response [Not Recovered/Not Resolved]
  - Dystonia [Not Recovered/Not Resolved]
